FAERS Safety Report 14033515 (Version 1)
Quarter: 2017Q4

REPORT INFORMATION
  Report Type: Spontaneous
  Country: US (occurrence: US)
  Receive Date: 20171003
  Receipt Date: 20171003
  Transmission Date: 20180321
  Serious: Yes (Other)
  Sender: FDA-Public Use
  Company Number: None

PATIENT
  Age: 56 Year
  Sex: Female
  Weight: 83.25 kg

DRUGS (1)
  1. MYRBETRIQ [Suspect]
     Active Substance: MIRABEGRON
     Indication: HYPERTONIC BLADDER
     Dosage: ?          QUANTITY:1 TABLET(S);?
     Route: 048
     Dates: start: 20170816, end: 20171002

REACTIONS (6)
  - Swollen tongue [None]
  - Angioedema [None]
  - Dysphagia [None]
  - Lethargy [None]
  - Pharyngeal oedema [None]
  - Throat tightness [None]

NARRATIVE: CASE EVENT DATE: 20170906
